FAERS Safety Report 11472293 (Version 1)
Quarter: 2015Q3

REPORT INFORMATION
  Report Type: Spontaneous
  Country: US (occurrence: US)
  Receive Date: 20150908
  Receipt Date: 20150908
  Transmission Date: 20151125
  Serious: No
  Sender: FDA-Public Use
  Company Number: US-SA-2015SA095364

PATIENT
  Age: 55 Year
  Sex: Female

DRUGS (4)
  1. TOUJEO [Suspect]
     Active Substance: INSULIN GLARGINE
     Indication: TYPE 2 DIABETES MELLITUS
     Dosage: DOSE:3 UNIT(S)
     Route: 065
     Dates: start: 20150611
  2. TOUJEO [Suspect]
     Active Substance: INSULIN GLARGINE
     Indication: TYPE 2 DIABETES MELLITUS
     Dosage: DOSE:3 UNIT(S)
     Route: 065
     Dates: start: 20150611
  3. LEVEMIR [Concomitant]
     Active Substance: INSULIN DETEMIR
  4. SOLOSTAR [Concomitant]
     Active Substance: DEVICE

REACTIONS (2)
  - Injection site discomfort [Unknown]
  - Injection site haemorrhage [Unknown]
